FAERS Safety Report 7928678-6 (Version None)
Quarter: 2011Q4

REPORT INFORMATION
  Report Type: 
  Country: None (occurrence: None)
  Receive Date: 20111118
  Receipt Date: 20111117
  Transmission Date: 20120403
  Serious: Yes (Other)
  Sender: FDA-Public Use
  Company Number: US-PFIZER INC-2011282594

PATIENT
  Sex: Male
  Weight: 92.97 kg

DRUGS (4)
  1. LYRICA [Suspect]
     Indication: BACK PAIN
     Dosage: 75 MG, 2X/DAY
     Route: 048
     Dates: start: 20100101, end: 20100901
  2. SITAGLIPTIN AND METFORMIN HYDROCHLORIDE [Concomitant]
     Indication: DIABETES MELLITUS
     Dosage: UNK, 2X/DAY
     Route: 048
  3. INSULIN [Concomitant]
     Indication: DIABETES MELLITUS
     Dosage: 50 IU,DAILY
  4. LYRICA [Suspect]
     Dosage: 75 MG, 2X/DAY
     Route: 048
     Dates: start: 20111001, end: 20111113

REACTIONS (2)
  - ACTIVITIES OF DAILY LIVING IMPAIRED [None]
  - SOMNOLENCE [None]
